FAERS Safety Report 9877479 (Version 9)
Quarter: 2016Q2

REPORT INFORMATION
  Report Type: Spontaneous
  Country: US (occurrence: US)
  Receive Date: 20140206
  Receipt Date: 20160601
  Transmission Date: 20160815
  Serious: Yes (Hospitalization, Other)
  Sender: FDA-Public Use
  Company Number: US-009507513-1401USA012770

PATIENT
  Sex: Male
  Weight: 91.61 kg

DRUGS (4)
  1. AVODART [Concomitant]
     Active Substance: DUTASTERIDE
     Indication: PROSTATOMEGALY
     Dosage: UNK, UNKNOWN
     Route: 065
     Dates: start: 20030314, end: 20120405
  2. FINASTERIDE. [Suspect]
     Active Substance: FINASTERIDE
     Indication: PRODUCT USED FOR UNKNOWN INDICATION
     Dosage: 1 MG, QD
     Route: 048
     Dates: start: 20130108, end: 20140403
  3. PROPECIA [Suspect]
     Active Substance: FINASTERIDE
     Indication: ANDROGENETIC ALOPECIA
     Dosage: 1 MG, QD
     Route: 048
     Dates: start: 20030314, end: 20131218
  4. PROSCAR [Suspect]
     Active Substance: FINASTERIDE
     Indication: BENIGN PROSTATIC HYPERPLASIA
     Dosage: TAKE 1/2 OF 5 MG TAB QD
     Route: 048
     Dates: start: 20110111

REACTIONS (36)
  - Rotator cuff repair [Unknown]
  - Chest discomfort [Unknown]
  - Benign prostatic hyperplasia [Not Recovered/Not Resolved]
  - Ventricular extrasystoles [Unknown]
  - Cardiac ablation [Unknown]
  - Depression [Unknown]
  - Urethral obstruction [Unknown]
  - Cystitis noninfective [Unknown]
  - Penile pain [Not Recovered/Not Resolved]
  - Wrong technique in product usage process [Unknown]
  - Urethral meatus stenosis [Unknown]
  - Dysuria [Unknown]
  - Gynaecomastia [Unknown]
  - Nipple pain [Unknown]
  - Parkinson^s disease [Unknown]
  - Gastrooesophageal reflux disease [Unknown]
  - Nocturia [Unknown]
  - Coronary artery stenosis [Unknown]
  - Peyronie^s disease [Not Recovered/Not Resolved]
  - Inguinal hernia repair [Unknown]
  - Gastric ulcer [Unknown]
  - Renal cyst [Unknown]
  - Sexual dysfunction [Not Recovered/Not Resolved]
  - Drug administration error [Unknown]
  - Ventricular tachycardia [Unknown]
  - Haemorrhoids [Unknown]
  - Hypertension [Unknown]
  - Presyncope [Unknown]
  - Hyperlipidaemia [Unknown]
  - Erectile dysfunction [Unknown]
  - Erectile dysfunction [Unknown]
  - Angiopathy [Unknown]
  - Deafness [Unknown]
  - Mitral valve incompetence [Unknown]
  - Irritable bowel syndrome [Unknown]
  - Urinary tract disorder [Not Recovered/Not Resolved]

NARRATIVE: CASE EVENT DATE: 2008
